FAERS Safety Report 8462018-1 (Version None)
Quarter: 2012Q2

REPORT INFORMATION
  Report Type: 
  Country: None (occurrence: None)
  Receive Date: 20120323
  Receipt Date: 20111130
  Transmission Date: 20120825
  Serious: Yes (Other)
  Sender: FDA-Public Use
  Company Number: 163-21880-11100528

PATIENT
  Age: 51 Year
  Sex: Male

DRUGS (6)
  1. REVLIMID [Suspect]
     Indication: MULTIPLE MYELOMA
     Dosage: 25 MG, 1 IN 1 D, PO
     Route: 048
     Dates: start: 20100707
  2. METOPROLOL TARTRATE [Concomitant]
  3. NEXIUM [Concomitant]
  4. VIAGRA [Concomitant]
  5. ENALAPRIL MALEATE [Concomitant]
  6. ALLOPURINOL [Concomitant]

REACTIONS (1)
  - NEUTROPHIL COUNT DECREASED [None]
